FAERS Safety Report 11750173 (Version 1)
Quarter: 2015Q4

REPORT INFORMATION
  Report Type: Spontaneous
  Country: US (occurrence: US)
  Receive Date: 20151118
  Receipt Date: 20151118
  Transmission Date: 20160304
  Serious: No
  Sender: FDA-Public Use
  Company Number: US-BIOGENIDEC-2015BI151673

PATIENT
  Sex: Female

DRUGS (1)
  1. AVONEX [Suspect]
     Active Substance: INTERFERON BETA-1A
     Indication: MULTIPLE SCLEROSIS
     Route: 030

REACTIONS (7)
  - Temperature intolerance [Unknown]
  - Dizziness [Unknown]
  - Feeling hot [Unknown]
  - Fatigue [Unknown]
  - Palpitations [Unknown]
  - Weight increased [Unknown]
  - Malaise [Unknown]
